FAERS Safety Report 10412866 (Version 1)
Quarter: 2014Q3

REPORT INFORMATION
  Report Type: Spontaneous
  Country: US (occurrence: None)
  Receive Date: 20140826
  Receipt Date: 20140826
  Transmission Date: 20150326
  Serious: Yes (Other)
  Sender: FDA-Public Use
  Company Number: None

PATIENT
  Age: 50 Year
  Sex: Female

DRUGS (1)
  1. DEXILANT [Suspect]
     Active Substance: DEXLANSOPRAZOLE
     Indication: GASTRIC ULCER

REACTIONS (5)
  - Pyrexia [None]
  - Swelling face [None]
  - Dyspnoea [None]
  - Rash generalised [None]
  - Chills [None]

NARRATIVE: CASE EVENT DATE: 20140823
